FAERS Safety Report 5062050-4 (Version None)
Quarter: 2006Q3

REPORT INFORMATION
  Report Type: 
  Country: None (occurrence: None)
  Receive Date: 20060703
  Receipt Date: 20050929
  Transmission Date: 20061208
  Serious: No
  Sender: FDA-Public Use
  Company Number: 2005S1009826

PATIENT
  Age: 36 Year
  Sex: Male
  Weight: 117.4816 kg

DRUGS (14)
  1. CLOZAPINE [Suspect]
     Indication: BIPOLAR DISORDER
     Dosage: SEE IMAGE
     Route: 048
  2. CLOZAPINE [Suspect]
     Indication: SCHIZOAFFECTIVE DISORDER
     Dosage: SEE IMAGE
     Route: 048
  3. DESMOPRESSIN [Concomitant]
  4. NICOTINIC ACID [Concomitant]
  5. VALPROIC ACID [Concomitant]
  6. VALPROATE SODIUM [Concomitant]
  7. CLONAZEPAM [Concomitant]
  8. LITHIUM CARBONATE [Concomitant]
  9. GEMFIBROZIL [Concomitant]
  10. RISPERIDONE [Concomitant]
  11. TOCOPHEROL CONCENTRATE CAP [Concomitant]
  12. OMEGA-3 TRIGLYCERIDES [Concomitant]
  13. VITAMINS NOS/MINERALS NOS [Concomitant]
  14. ACETYLSALICYLIC ACID SRT [Concomitant]

REACTIONS (1)
  - GRANULOCYTOPENIA [None]
